FAERS Safety Report 7108254-8 (Version None)
Quarter: 2010Q4

REPORT INFORMATION
  Report Type: 
  Country: None (occurrence: None)
  Receive Date: 20101103
  Receipt Date: 20101026
  Transmission Date: 20110411
  Serious: Yes (Hospitalization)
  Sender: FDA-Public Use
  Company Number: 2010SP052257

PATIENT
  Age: 47 Year
  Sex: Female
  Weight: 63 kg

DRUGS (3)
  1. TEMOZOLOMIDE [Suspect]
     Indication: OVARIAN CANCER
     Dosage: PO
     Route: 048
     Dates: start: 20100810
  2. ABT-888 (INVESTIGATIONAL DRUG) [Suspect]
     Indication: OVARIAN CANCER
     Dosage: 40 MG; BID; PO
     Route: 048
     Dates: start: 20100810
  3. ONDANSETRON [Concomitant]

REACTIONS (11)
  - ABDOMINAL PAIN [None]
  - BLOOD POTASSIUM DECREASED [None]
  - CONSTIPATION [None]
  - DECREASED APPETITE [None]
  - DYSPNOEA [None]
  - FATIGUE [None]
  - HYPOKALAEMIA [None]
  - NAUSEA [None]
  - PALPITATIONS [None]
  - VOMITING [None]
  - WHITE BLOOD CELL COUNT DECREASED [None]
